FAERS Safety Report 14260686 (Version 5)
Quarter: 2018Q2

REPORT INFORMATION
  Report Type: Report from Study
  Country: GB (occurrence: GB)
  Receive Date: 20171207
  Receipt Date: 20180405
  Transmission Date: 20180711
  Serious: Yes (Hospitalization, Other)
  Sender: FDA-Public Use
  Company Number: GB-BRISTOL-MYERS SQUIBB COMPANY-BMS-2017-089139

PATIENT
  Sex: Female

DRUGS (2)
  1. METHOTREXATE. [Concomitant]
     Active Substance: METHOTREXATE
     Indication: PRODUCT USED FOR UNKNOWN INDICATION
     Route: 065
  2. ABATACEPT [Suspect]
     Active Substance: ABATACEPT
     Indication: RHEUMATOID ARTHRITIS
     Dosage: 125 MG, QWK
     Route: 058
     Dates: start: 20150622

REACTIONS (17)
  - Cough [Unknown]
  - Cardiac failure [Unknown]
  - Drug dose omission [Unknown]
  - Arthralgia [Unknown]
  - Pleural effusion [Unknown]
  - Device malfunction [Unknown]
  - Viral infection [Unknown]
  - Influenza [Unknown]
  - Muscle strain [Unknown]
  - Injection site haemorrhage [Unknown]
  - Drug ineffective [Unknown]
  - Malaise [Unknown]
  - Influenza A virus test positive [Unknown]
  - Drug administration error [Unknown]
  - Bacterial infection [Unknown]
  - Chest pain [Unknown]
  - Back pain [Unknown]
